FAERS Safety Report 11325451 (Version 11)
Quarter: 2018Q1

REPORT INFORMATION
  Report Type: Report from Study
  Country: US (occurrence: US)
  Receive Date: 20150730
  Receipt Date: 20180319
  Transmission Date: 20180508
  Serious: Yes (Hospitalization, Other)
  Sender: FDA-Public Use
  Company Number: US-JNJFOC-20150716650

PATIENT
  Age: 72 Year
  Sex: Female

DRUGS (31)
  1. IMBRUVICA [Suspect]
     Active Substance: IBRUTINIB
     Indication: MANTLE CELL LYMPHOMA
     Route: 048
     Dates: start: 20130701
  2. ARMOUR THYROID [Concomitant]
     Active Substance: THYROID, PORCINE
     Indication: THYROID DISORDER
     Route: 048
  3. IMBRUVICA [Suspect]
     Active Substance: IBRUTINIB
     Indication: MANTLE CELL LYMPHOMA
     Route: 048
     Dates: start: 20130710
  4. IMBRUVICA [Suspect]
     Active Substance: IBRUTINIB
     Indication: MANTLE CELL LYMPHOMA
     Route: 048
     Dates: start: 20151223
  5. VITAMIN E\VITAMINS [Concomitant]
     Active Substance: .ALPHA.-TOCOPHEROL\VITAMINS
  6. CALCIUM [Concomitant]
     Active Substance: CALCIUM
  7. SYNTHROID [Concomitant]
     Active Substance: LEVOTHYROXINE SODIUM
     Indication: HYPOTHYROIDISM
     Route: 048
  8. BIOTIN [Concomitant]
     Active Substance: BIOTIN
  9. L GLUTAMINE [Concomitant]
     Active Substance: GLUTAMINE
  10. CARDIZEM [Concomitant]
     Active Substance: DILTIAZEM HYDROCHLORIDE
     Indication: ATRIAL FIBRILLATION
     Route: 048
     Dates: start: 20140501
  11. ASPIRIN. [Concomitant]
     Active Substance: ASPIRIN
  12. GLUTAMINE [Concomitant]
     Active Substance: GLUTAMINE
  13. BETA CAROTENE [Concomitant]
  14. IMBRUVICA [Suspect]
     Active Substance: IBRUTINIB
     Indication: MANTLE CELL LYMPHOMA
     Route: 048
     Dates: start: 20161222
  15. L ARGININE [Concomitant]
     Active Substance: ARGININE
  16. IMBRUVICA [Suspect]
     Active Substance: IBRUTINIB
     Indication: MANTLE CELL LYMPHOMA
     Route: 048
     Dates: start: 20140113
  17. IMBRUVICA [Suspect]
     Active Substance: IBRUTINIB
     Indication: MANTLE CELL LYMPHOMA
     Route: 048
     Dates: start: 20140109
  18. BIFIDOBACTERIUM LACTIS [Concomitant]
     Active Substance: BIFIDOBACTERIUM ANIMALIS LACTIS
  19. VITAMIN B COMPLEX [Concomitant]
     Active Substance: CYANOCOBALAMIN\DEXPANTHENOL\NIACINAMIDE\PYRIDOXINE HYDROCHLORIDE\RIBOFLAVIN 5^-PHOSPHATE SODIUM\THIAMINE HYDROCHLORIDE\VITAMIN B COMPLEX
  20. TAMIFLU [Concomitant]
     Active Substance: OSELTAMIVIR PHOSPHATE
  21. KLOR-CON [Concomitant]
     Active Substance: POTASSIUM CHLORIDE
     Indication: MINERAL SUPPLEMENTATION
     Dates: start: 20140501
  22. CHROMIUM PICOLINATE [Concomitant]
     Active Substance: CHROMIUM PICOLINATE
  23. ASPIRIN. [Concomitant]
     Active Substance: ASPIRIN
  24. CALCIUM W/COLECALCIFEROL [Concomitant]
     Active Substance: CALCIUM\CHOLECALCIFEROL
  25. CARDIZEM [Concomitant]
     Active Substance: DILTIAZEM HYDROCHLORIDE
     Indication: HYPOTHYROIDISM
     Route: 048
     Dates: start: 20140501
  26. ASCORBIC ACID. [Concomitant]
     Active Substance: ASCORBIC ACID
  27. BACTRIM [Concomitant]
     Active Substance: SULFAMETHOXAZOLE\TRIMETHOPRIM
  28. LECITHIN [Concomitant]
     Active Substance: LECITHIN
  29. GARLIC. [Concomitant]
     Active Substance: GARLIC
  30. TURMERIC [Concomitant]
     Active Substance: HERBALS\TURMERIC
  31. LYSINE [Concomitant]
     Active Substance: LYSINE

REACTIONS (24)
  - Deafness [Unknown]
  - Dehydration [Not Recovered/Not Resolved]
  - Nasopharyngitis [Not Recovered/Not Resolved]
  - Hypoacusis [Not Recovered/Not Resolved]
  - Respiratory tract infection [Recovered/Resolved]
  - Pneumonia [Recovered/Resolved]
  - Eye infection [Recovered/Resolved]
  - Sinusitis [Not Recovered/Not Resolved]
  - Protein total abnormal [Recovered/Resolved]
  - Sputum abnormal [Not Recovered/Not Resolved]
  - White blood cell count increased [Unknown]
  - Cystitis [Not Recovered/Not Resolved]
  - Contusion [Unknown]
  - Bronchitis [Recovering/Resolving]
  - Atrial fibrillation [Not Recovered/Not Resolved]
  - Tympanic membrane perforation [Not Recovered/Not Resolved]
  - Malaise [Unknown]
  - Ear haemorrhage [Unknown]
  - Thyroid disorder [Unknown]
  - Ear infection [Recovered/Resolved]
  - Productive cough [Not Recovered/Not Resolved]
  - Surgery [Unknown]
  - Infection [Not Recovered/Not Resolved]
  - Diarrhoea [Not Recovered/Not Resolved]

NARRATIVE: CASE EVENT DATE: 2013
